FAERS Safety Report 21490445 (Version 1)
Quarter: 2022Q4

REPORT INFORMATION
  Report Type: Spontaneous
  Country: US (occurrence: None)
  Receive Date: 20221021
  Receipt Date: 20221021
  Transmission Date: 20230113
  Serious: No
  Sender: FDA-Public Use
  Company Number: US-SUPERNUS Pharmaceuticals, Inc.-SUP202209-002977

PATIENT
  Age: 52 Year
  Sex: Female
  Weight: 56 kg

DRUGS (2)
  1. QELBREE [Suspect]
     Active Substance: VILOXAZINE HYDROCHLORIDE
     Indication: Parkinson^s disease
     Dosage: 200 MG
  2. QELBREE [Suspect]
     Active Substance: VILOXAZINE HYDROCHLORIDE
     Dates: end: 20220919

REACTIONS (7)
  - Nightmare [Unknown]
  - Cough [Unknown]
  - Feeling abnormal [Unknown]
  - Insomnia [Unknown]
  - Decreased appetite [Unknown]
  - Agitation [Unknown]
  - Product use in unapproved indication [Unknown]
